FAERS Safety Report 9908489 (Version 1)
Quarter: 2014Q1

REPORT INFORMATION
  Report Type: Spontaneous
  Country: US (occurrence: None)
  Receive Date: 20140214
  Receipt Date: 20140214
  Transmission Date: 20141002
  Serious: Yes (Hospitalization)
  Sender: FDA-Public Use
  Company Number: None

PATIENT
  Age: 81 None
  Sex: Female
  Weight: 78.4 kg

DRUGS (15)
  1. ASPIRIN [Suspect]
     Indication: BACK PAIN
     Dosage: RECENT
     Route: 048
  2. NAPROSYN [Suspect]
     Indication: BACK PAIN
     Dosage: RECENT
     Route: 048
  3. MVI [Concomitant]
  4. GEMIFIBROZIL [Concomitant]
  5. ROBAXIN [Concomitant]
  6. SENNA [Concomitant]
  7. DULOXETINE [Concomitant]
  8. APAP [Concomitant]
  9. CA+D [Concomitant]
  10. VIT B12 [Concomitant]
  11. OMEGA3 [Concomitant]
  12. VIT D [Concomitant]
  13. THIAMINE [Concomitant]
  14. POLYETHYLENE [Concomitant]
  15. GLYCOL [Concomitant]

REACTIONS (4)
  - Anaemia [None]
  - Syncope [None]
  - Upper gastrointestinal haemorrhage [None]
  - Duodenal ulcer [None]
